FAERS Safety Report 15000484 (Version 1)
Quarter: 2018Q2

REPORT INFORMATION
  Report Type: Spontaneous
  Country: US (occurrence: US)
  Receive Date: 20180612
  Receipt Date: 20180612
  Transmission Date: 20180711
  Serious: No
  Sender: FDA-Public Use
  Company Number: US-TEVA-2018-US-901895

PATIENT
  Age: 82 Year
  Sex: Female
  Weight: 71 kg

DRUGS (1)
  1. QVAR REDIHALER [Suspect]
     Active Substance: BECLOMETHASONE DIPROPIONATE
     Indication: BRONCHIECTASIS
     Dosage: ONE PUFF TWICE DAILY
     Route: 065
     Dates: start: 20180524, end: 20180526

REACTIONS (3)
  - Drug prescribing error [Unknown]
  - Vertigo [Not Recovered/Not Resolved]
  - Product use in unapproved indication [Unknown]

NARRATIVE: CASE EVENT DATE: 20180526
